FAERS Safety Report 4438490-0 (Version None)
Quarter: 2004Q3

REPORT INFORMATION
  Report Type: 
  Country: None (occurrence: None)
  Receive Date: 20040728
  Receipt Date: 20040324
  Transmission Date: 20050211
  Serious: No
  Sender: FDA-Public Use
  Company Number: USA040362375

PATIENT
  Age: 12 Year
  Sex: Male

DRUGS (4)
  1. STRATTERA [Suspect]
     Dates: start: 20030101
  2. DDAVP [Concomitant]
  3. ZOLOFT [Concomitant]
  4. MIRALAX [Concomitant]

REACTIONS (6)
  - GASTROENTERITIS [None]
  - GASTROENTERITIS VIRAL [None]
  - PRURITUS [None]
  - RASH [None]
  - URTICARIA [None]
  - VIRAL INFECTION [None]
